FAERS Safety Report 5629077-2 (Version None)
Quarter: 2008Q1

REPORT INFORMATION
  Report Type: 
  Country: None (occurrence: None)
  Receive Date: 20080216
  Receipt Date: 20071218
  Transmission Date: 20080703
  Serious: Yes (Other)
  Sender: FDA-Public Use
  Company Number: US-PURDUE-USA_2007_0031641

PATIENT
  Sex: Male
  Weight: 94 kg

DRUGS (2)
  1. OXYCONTIN [Suspect]
     Indication: PAIN
     Dosage: 40 MG, TID
     Dates: start: 19991111, end: 20020201
  2. PRILOSEC [Concomitant]
     Dosage: 20 MG, UNK

REACTIONS (4)
  - DRUG DEPENDENCE [None]
  - MALAISE [None]
  - SUICIDAL IDEATION [None]
  - THINKING ABNORMAL [None]
